FAERS Safety Report 13597190 (Version 1)
Quarter: 2017Q2

REPORT INFORMATION
  Report Type: Spontaneous
  Country: US (occurrence: US)
  Receive Date: 20170531
  Receipt Date: 20170531
  Transmission Date: 20170830
  Serious: No
  Sender: FDA-Public Use
  Company Number: US-ELI_LILLY_AND_COMPANY-US201705007878

PATIENT
  Age: 59 Year
  Sex: Female

DRUGS (1)
  1. TALTZ [Suspect]
     Active Substance: IXEKIZUMAB
     Indication: PRODUCT USED FOR UNKNOWN INDICATION
     Dosage: 80 MG, EVERY OTHER WEEK
     Route: 058

REACTIONS (4)
  - Pain [Unknown]
  - Headache [Unknown]
  - Sinusitis [Unknown]
  - Hypersensitivity [Unknown]
